FAERS Safety Report 18570371 (Version 1)
Quarter: 2020Q4

REPORT INFORMATION
  Report Type: Report from Study
  Country: FR (occurrence: FR)
  Receive Date: 20201202
  Receipt Date: 20201202
  Transmission Date: 20210114
  Serious: Yes (Hospitalization)
  Sender: FDA-Public Use
  Company Number: FR-GW PHARMA-201511FRGW0766

PATIENT

DRUGS (10)
  1. URBANYL [Concomitant]
     Active Substance: CLOBAZAM
     Dosage: 5 MILLIGRAM, BID
     Route: 002
     Dates: start: 20151106, end: 20151109
  2. EPIDIOLEX [Suspect]
     Active Substance: CANNABIDIOL
     Indication: SEVERE MYOCLONIC EPILEPSY OF INFANCY
     Dosage: 20 MG/KG, 360 MILLIGRAM, QD
     Route: 048
     Dates: start: 20151009, end: 20160330
  3. URBANYL [Concomitant]
     Active Substance: CLOBAZAM
     Indication: SEVERE MYOCLONIC EPILEPSY OF INFANCY
     Dosage: 5 MILLIGRAM, QD
     Route: 002
     Dates: start: 201405, end: 20151106
  4. URBANYL [Concomitant]
     Active Substance: CLOBAZAM
     Dosage: QD
     Route: 002
     Dates: start: 20151110
  5. ZONEGRAN [Concomitant]
     Active Substance: ZONISAMIDE
     Indication: SEVERE MYOCLONIC EPILEPSY OF INFANCY
     Dosage: 75 MILLIGRAM, BID
     Route: 002
     Dates: start: 201405
  6. EPIDIOLEX [Suspect]
     Active Substance: CANNABIDIOL
     Dosage: 180 MILLIGRAM, QD
     Route: 048
     Dates: start: 20151123, end: 20160330
  7. DEPAKINE [Suspect]
     Active Substance: VALPROATE SODIUM
     Dosage: 200 MILLIGRAM, BID
     Route: 002
     Dates: start: 20151110
  8. DIACOMIT [Concomitant]
     Active Substance: STIRIPENTOL
     Indication: SEVERE MYOCLONIC EPILEPSY OF INFANCY
     Dosage: 300 MILLIGRAM, BID
     Route: 002
     Dates: start: 201405
  9. DEPAKINE [Suspect]
     Active Substance: VALPROATE SODIUM
     Indication: SEVERE MYOCLONIC EPILEPSY OF INFANCY
     Dosage: 240 MILLIGRAM, BID
     Route: 002
     Dates: start: 201405, end: 20151109
  10. MELATONIN [Concomitant]
     Active Substance: MELATONIN
     Indication: SLEEP DISORDER
     Dosage: 6 MILLIGRAM, QD
     Route: 048
     Dates: start: 201310, end: 20151229

REACTIONS (1)
  - Status epilepticus [Recovered/Resolved]

NARRATIVE: CASE EVENT DATE: 20151106
